FAERS Safety Report 6167647-6 (Version None)
Quarter: 2009Q2

REPORT INFORMATION
  Report Type: 
  Country: None (occurrence: None)
  Receive Date: 20090424
  Receipt Date: 20090415
  Transmission Date: 20091009
  Serious: Yes (Other)
  Sender: FDA-Public Use
  Company Number: PHHY2009MX13260

PATIENT
  Sex: Male

DRUGS (2)
  1. DIOVAN HCT [Suspect]
     Indication: HYPERTENSION
     Dosage: 1 DF (160/12.5 MG)/ DAY
     Route: 048
     Dates: start: 20050901, end: 20080301
  2. DIOVAN HCT [Suspect]
     Dosage: 1 DF (160/25 MG)/ DAY
     Route: 048
     Dates: start: 20080301

REACTIONS (5)
  - CARDIAC DISCOMFORT [None]
  - CARDIOVASCULAR DISORDER [None]
  - DRUG INEFFECTIVE [None]
  - EMOTIONAL DISTRESS [None]
  - OEDEMA PERIPHERAL [None]
